FAERS Safety Report 6672472-3 (Version None)
Quarter: 2010Q2

REPORT INFORMATION
  Report Type: 
  Country: None (occurrence: None)
  Receive Date: 20100408
  Receipt Date: 20100331
  Transmission Date: 20101027
  Serious: Yes (Hospitalization, Other)
  Sender: FDA-Public Use
  Company Number: LB-ABBOTT-10P-093-0635774-00

PATIENT
  Age: 45 Year
  Sex: Male

DRUGS (8)
  1. DEPAKINE CHRONO [Suspect]
     Indication: CONVULSION
     Route: 048
     Dates: start: 20040101
  2. DEPAKINE CHRONO [Suspect]
     Route: 040
     Dates: start: 20100310, end: 20100310
  3. DEPAKINE CHRONO [Suspect]
     Route: 040
     Dates: start: 20100311, end: 20100312
  4. DEPAKINE CHRONO [Suspect]
     Route: 040
     Dates: start: 20100313, end: 20100316
  5. DEPAKINE CHRONO [Suspect]
     Route: 048
     Dates: start: 20100313, end: 20100316
  6. DEPAKINE CHRONO [Suspect]
     Route: 048
     Dates: start: 20100321
  7. LAMOTRIGINE [Concomitant]
     Indication: DRUG USE FOR UNKNOWN INDICATION
  8. CLONAZEPAM [Concomitant]
     Indication: DRUG USE FOR UNKNOWN INDICATION

REACTIONS (3)
  - CONVULSION [None]
  - DRUG INEFFECTIVE [None]
  - MEDICATION RESIDUE [None]
